FAERS Safety Report 25131000 (Version 1)
Quarter: 2025Q1

REPORT INFORMATION
  Report Type: Report from Study
  Country: US (occurrence: US)
  Receive Date: 20250327
  Receipt Date: 20250327
  Transmission Date: 20250409
  Serious: Yes (Hospitalization, Other)
  Sender: ALEXION PHARMACEUTICALS
  Company Number: US-AstraZeneca-CH-00832496A

PATIENT
  Age: 60 Year

DRUGS (1)
  1. ACALABRUTINIB [Suspect]
     Active Substance: ACALABRUTINIB
     Indication: Waldenstrom^s macroglobulinaemia
     Dosage: 100 MILLIGRAM, Q12H

REACTIONS (9)
  - Erectile dysfunction [Unknown]
  - Road traffic accident [Unknown]
  - Lower limb fracture [Unknown]
  - Lung disorder [Unknown]
  - Depression [Unknown]
  - Stress [Unknown]
  - Asthenia [Unknown]
  - Mental impairment [Unknown]
  - Pain in extremity [Unknown]
